FAERS Safety Report 19115673 (Version 1)
Quarter: 2021Q2

REPORT INFORMATION
  Report Type: Spontaneous
  Country: FR (occurrence: FR)
  Receive Date: 20210409
  Receipt Date: 20210409
  Transmission Date: 20210717
  Serious: Yes (Other)
  Sender: FDA-Public Use
  Company Number: FR-ROCHE-2801280

PATIENT
  Age: 51 Year
  Sex: Male

DRUGS (4)
  1. RENITEC [ENALAPRILAT] [Suspect]
     Active Substance: ENALAPRILAT
     Indication: HYPERTENSION
     Dosage: MOST RECENT DOSE WAS RECEIVED ON 23/FEB/2021
     Route: 048
     Dates: start: 20210222
  2. DIAZEPAM. [Suspect]
     Active Substance: DIAZEPAM
     Indication: ANXIETY
     Route: 048
     Dates: start: 20210222
  3. ZOPICLONE [Suspect]
     Active Substance: ZOPICLONE
     Indication: SLEEP DISORDER
     Route: 048
     Dates: start: 20210222
  4. NEBIVOLOL. [Suspect]
     Active Substance: NEBIVOLOL
     Indication: HYPERTENSION
     Route: 048
     Dates: start: 20210222

REACTIONS (1)
  - Angioedema [Recovered/Resolved]

NARRATIVE: CASE EVENT DATE: 20210223
